FAERS Safety Report 19031767 (Version 1)
Quarter: 2021Q1

REPORT INFORMATION
  Report Type: Spontaneous
  Country: IT (occurrence: IT)
  Receive Date: 20210319
  Receipt Date: 20210319
  Transmission Date: 20210420
  Serious: Yes (Death)
  Sender: FDA-Public Use
  Company Number: IT-SA-2021SA093112

PATIENT
  Age: 64 Year
  Sex: Female

DRUGS (3)
  1. DOCETAXEL. [Suspect]
     Active Substance: DOCETAXEL
     Indication: GASTRIC CANCER
     Dosage: 75 MG/M2, QH, ONE CYCLE OF PREOPERATIVE TCF
     Route: 042
  2. CISPLATIN. [Suspect]
     Active Substance: CISPLATIN
     Indication: GASTRIC CANCER
     Dosage: 75 MG/M2, Q4H (INFUSION)
     Route: 042
  3. 5?FLUOROURACIL [FLUOROURACIL] [Suspect]
     Active Substance: FLUOROURACIL
     Indication: GASTRIC CANCER
     Dosage: 300 MG/M2, QD
     Route: 042

REACTIONS (2)
  - Dyspnoea [Fatal]
  - Performance status decreased [Fatal]
